FAERS Safety Report 5825944-5 (Version None)
Quarter: 2008Q3

REPORT INFORMATION
  Report Type: 
  Country: None (occurrence: None)
  Receive Date: 20080729
  Receipt Date: 20080722
  Transmission Date: 20090109
  Serious: Yes (Other)
  Sender: FDA-Public Use
  Company Number: PHHY2008BR14790

PATIENT
  Sex: Male
  Weight: 98 kg

DRUGS (2)
  1. TRILEPTAL [Suspect]
     Indication: MOOD SWINGS
     Dosage: ONCE A.M, ONCE P.M.
     Route: 048
  2. FLUOXETINE [Concomitant]
     Indication: BALANCE DISORDER
     Dosage: 1 TABLET AT NIGHT
     Route: 048

REACTIONS (3)
  - ACNE [None]
  - RASH PUSTULAR [None]
  - SHOULDER ARTHROPLASTY [None]
